FAERS Safety Report 16398227 (Version 1)
Quarter: 2019Q2

REPORT INFORMATION
  Report Type: Report from Study
  Country: IT (occurrence: IT)
  Receive Date: 20190606
  Receipt Date: 20190606
  Transmission Date: 20190711
  Serious: Yes (Other)
  Sender: FDA-Public Use
  Company Number: IT-PFIZER INC-2019241928

PATIENT
  Age: 64 Year
  Sex: Female

DRUGS (2)
  1. DICLOREUM [DICLOFENAC SODIUM] [Suspect]
     Active Substance: DICLOFENAC SODIUM
     Indication: OSTEOARTHRITIS
     Dosage: 1 DF, 1X/DAY (STRENGTH 75MG/3ML )
     Route: 030
     Dates: start: 20190206, end: 20190208
  2. FELDENE [Suspect]
     Active Substance: PIROXICAM
     Indication: OSTEOARTHRITIS
     Dosage: 1 DF, 1X/DAY
     Route: 030
     Dates: start: 20190206, end: 20190208

REACTIONS (2)
  - Drug abuse [Unknown]
  - Abdominal pain upper [Recovering/Resolving]

NARRATIVE: CASE EVENT DATE: 20190208
